FAERS Safety Report 7423976-7 (Version None)
Quarter: 2011Q2

REPORT INFORMATION
  Report Type: 
  Country: None (occurrence: None)
  Receive Date: 20110419
  Receipt Date: 20110414
  Transmission Date: 20111010
  Serious: Yes (Hospitalization)
  Sender: FDA-Public Use
  Company Number: B0712990A

PATIENT
  Sex: Female

DRUGS (3)
  1. PARACETAMOL [Concomitant]
     Route: 048
  2. DEROXAT [Suspect]
     Indication: DEPRESSION
     Dosage: 20MG PER DAY
     Route: 048
     Dates: start: 20110117, end: 20110206
  3. KARDEGIC [Suspect]
     Indication: CEREBROVASCULAR ACCIDENT
     Dosage: 160MG PER DAY
     Route: 048
     Dates: start: 20110101, end: 20110206

REACTIONS (5)
  - BREAKTHROUGH PAIN [None]
  - RECTAL HAEMORRHAGE [None]
  - COLITIS ISCHAEMIC [None]
  - ABDOMINAL PAIN [None]
  - EMBOLISM ARTERIAL [None]
